FAERS Safety Report 9916146 (Version 2)
Quarter: 2014Q2

REPORT INFORMATION
  Report Type: Spontaneous
  Country: IT (occurrence: IT)
  Receive Date: 20140221
  Receipt Date: 20140421
  Transmission Date: 20141212
  Serious: Yes (Other)
  Sender: FDA-Public Use
  Company Number: IT-MYLANLABS-2014S1002918

PATIENT
  Age: 63 Year
  Sex: Female
  Weight: 55 kg

DRUGS (7)
  1. PACLITAXEL [Suspect]
     Indication: OESOPHAGEAL CARCINOMA
     Route: 042
     Dates: start: 20140123, end: 20140205
  2. DECADRON [Concomitant]
     Indication: PREMEDICATION
     Dosage: 8MG/2ML INJCETION SOLUTION
     Route: 042
     Dates: start: 20140123, end: 20140205
  3. ZANTAC [Concomitant]
     Indication: PREMEDICATION
     Dosage: 50MG/5ML INJECTION
     Route: 042
     Dates: start: 20140123, end: 20140205
  4. CHLOR TRIMETON [Concomitant]
     Indication: PREMEDICATION
     Dosage: 10MG/1ML INJECTION SOLUTION
     Route: 042
     Dates: start: 20140123, end: 20140205
  5. ONDANSETRON KABI [Concomitant]
     Indication: PREMEDICATION
     Dosage: 2MG/ML SOLUTION INJECTION
     Route: 042
     Dates: start: 20140123, end: 20140205
  6. CARBOPLATINO TEVA [Concomitant]
     Indication: OESOPHAGEAL CARCINOMA
     Dosage: 10MG/ML
     Route: 042
     Dates: start: 20140123, end: 20140205
  7. CLEXANE T [Concomitant]
     Indication: ATRIAL FLUTTER
     Dosage: 6000UI AXA/0.6ML INJECTION SOLUTION
     Route: 058
     Dates: start: 20140123, end: 20140205

REACTIONS (3)
  - Dyspnoea [Recovered/Resolved]
  - Erythema [Recovered/Resolved]
  - Hot flush [Recovered/Resolved]
